FAERS Safety Report 10219491 (Version 1)
Quarter: 2014Q2

REPORT INFORMATION
  Report Type: Spontaneous
  Country: US (occurrence: None)
  Receive Date: 20140604
  Receipt Date: 20140604
  Transmission Date: 20141212
  Serious: Yes (Other)
  Sender: FDA-Public Use
  Company Number: None

PATIENT
  Age: 52 Year
  Sex: Female
  Weight: 103.87 kg

DRUGS (6)
  1. GEODON [Suspect]
     Indication: BIPOLAR I DISORDER
     Route: 048
     Dates: start: 20100301, end: 20130830
  2. LATUDA [Concomitant]
  3. BUPROPION ER [Concomitant]
  4. BUSPIRONE [Concomitant]
  5. PROPRANOLOL [Concomitant]
  6. AMBIEN [Concomitant]

REACTIONS (1)
  - Tardive dyskinesia [None]
